FAERS Safety Report 10241835 (Version 1)
Quarter: 2014Q1

REPORT INFORMATION
  Report Type: Spontaneous
  Country: US (occurrence: None)
  Receive Date: 20140306
  Receipt Date: 20140306
  Transmission Date: 20141002
  Serious: Yes (Other)
  Sender: FDA-Public Use
  Company Number: 163-21880-13124592

PATIENT
  Age: 63 Year
  Sex: Male
  Weight: 102 kg

DRUGS (12)
  1. REVLIMID (LENALIDOMIDE) (10 MILLIGRAM, CAPSULES) [Suspect]
     Indication: PLASMA CELL MYELOMA
     Route: 048
     Dates: start: 20130826
  2. POTASSIMIN (OTHER THERAPEUTIC PRODUCTS) (UNKNOWN) [Concomitant]
  3. LOPERAMIDE HCL (LOPERAMIDE HYDROCHLORIDE) (UNKNOWN) [Concomitant]
  4. FAMOTIDINE (FAMOTIDINE) (UNKNOWN) [Concomitant]
  5. SIMVASTATIN (SIMVASTATIN) (UNKNOWN) [Concomitant]
  6. CALCIUM CITRATE + D (CALCIUM CITRATE W/COLECALCIFEROL) (UNKNOWN) [Concomitant]
  7. PROPRANOLOL HCL (PROPRANOLOL HYDROCHLORIDE) (UNKNOWN) [Concomitant]
  8. CYCLOBENZAPRINE HCL (CYCLOBENZAPRINE HYDROCHLORIDE) (UNKNOWN) [Concomitant]
  9. ACYCLOVIR (ACICLOVIR) (UNKNOWN) [Concomitant]
  10. LASIX (FUROSEMIDE) (UNKNOWN) [Concomitant]
  11. MULTIVITAMIN (MULTIVITAMINS) (UNKNOWN) [Concomitant]
  12. WARFARIN SODIUM (WARFARIN SODIUM) (UNKNOWN) [Concomitant]

REACTIONS (3)
  - Thrombosis [None]
  - Rash [None]
  - Pruritus [None]
